FAERS Safety Report 23135394 (Version 1)
Quarter: 2023Q4

REPORT INFORMATION
  Report Type: Spontaneous
  Country: FR (occurrence: FR)
  Receive Date: 20231101
  Receipt Date: 20231101
  Transmission Date: 20240110
  Serious: Yes (Life-Threatening)
  Sender: FDA-Public Use
  Company Number: None

PATIENT
  Age: 72 Year
  Sex: Male
  Weight: 67 kg

DRUGS (3)
  1. DEXAMETHASONE [Suspect]
     Active Substance: DEXAMETHASONE
     Indication: Hypergammaglobulinaemia benign monoclonal
     Dosage: 1.000DF
     Route: 048
     Dates: start: 20211217, end: 20230523
  2. DARATUMUMAB [Suspect]
     Active Substance: DARATUMUMAB
     Indication: Hypergammaglobulinaemia benign monoclonal
     Dosage: 1.000DF
     Route: 042
     Dates: start: 20211217, end: 20230523
  3. REVLIMID [Suspect]
     Active Substance: LENALIDOMIDE
     Indication: Hypergammaglobulinaemia benign monoclonal
     Dosage: 15 MG/J PDT 21J/28
     Route: 048
     Dates: start: 20211217, end: 20230523

REACTIONS (1)
  - Malignant melanoma [Recovering/Resolving]

NARRATIVE: CASE EVENT DATE: 20230411
